FAERS Safety Report 15111341 (Version 3)
Quarter: 2018Q3

REPORT INFORMATION
  Report Type: Spontaneous
  Country: US (occurrence: US)
  Receive Date: 20180705
  Receipt Date: 20180820
  Transmission Date: 20181010
  Serious: No
  Sender: FDA-Public Use
  Company Number: US-SA-2018SA179132

PATIENT
  Age: 50 Year
  Sex: Female

DRUGS (2)
  1. ALIROCUMAB PREFILLED PEN [Suspect]
     Active Substance: ALIROCUMAB
     Indication: BLOOD CHOLESTEROL INCREASED
     Dosage: 75 MG, QOW
     Route: 058
     Dates: start: 201804
  2. PRALUENT [Suspect]
     Active Substance: ALIROCUMAB
     Indication: BLOOD CHOLESTEROL INCREASED
     Dosage: 75 MG, Q3W
     Route: 058
     Dates: start: 201804

REACTIONS (13)
  - Injection site mass [Recovered/Resolved]
  - Blister [Unknown]
  - Product use issue [Unknown]
  - Memory impairment [Unknown]
  - Abdominal pain upper [Unknown]
  - Fatigue [Unknown]
  - Mood altered [Unknown]
  - Nausea [Unknown]
  - Photosensitivity reaction [Unknown]
  - Injection site pain [Unknown]
  - Gastrointestinal disorder [Unknown]
  - Anxiety [Unknown]
  - Rash [Unknown]

NARRATIVE: CASE EVENT DATE: 2018
